FAERS Safety Report 12176138 (Version 1)
Quarter: 2016Q1

REPORT INFORMATION
  Report Type: Spontaneous
  Country: CA (occurrence: CA)
  Receive Date: 20160314
  Receipt Date: 20160314
  Transmission Date: 20160526
  Serious: Yes (Other)
  Sender: FDA-Public Use
  Company Number: CA-ROCHE-1725261

PATIENT
  Sex: Male

DRUGS (6)
  1. XOLAIR [Suspect]
     Active Substance: OMALIZUMAB
     Route: 058
     Dates: start: 20150923
  2. VENTOLIN [Concomitant]
     Active Substance: ALBUTEROL SULFATE
  3. XOLAIR [Suspect]
     Active Substance: OMALIZUMAB
     Indication: ASTHMA
     Route: 058
     Dates: start: 20150630
  4. ZENHALE [Concomitant]
     Active Substance: FORMOTEROL FUMARATE\MOMETASONE FUROATE
  5. XOLAIR [Suspect]
     Active Substance: OMALIZUMAB
     Route: 058
     Dates: start: 20160301
  6. TUDORZA PRESSAIR [Concomitant]
     Active Substance: ACLIDINIUM BROMIDE

REACTIONS (2)
  - Blood pressure increased [Unknown]
  - Weight increased [Not Recovered/Not Resolved]
